FAERS Safety Report 20783039 (Version 2)
Quarter: 2022Q2

REPORT INFORMATION
  Report Type: Spontaneous
  Country: CA (occurrence: CA)
  Receive Date: 20220504
  Receipt Date: 20220506
  Transmission Date: 20220721
  Serious: Yes (Death, Hospitalization)
  Sender: FDA-Public Use
  Company Number: CA-009507513-2204CAN009027

PATIENT
  Age: 60 Year
  Sex: Female

DRUGS (3)
  1. TEMODAL [Suspect]
     Active Substance: TEMOZOLOMIDE
     Indication: Glioblastoma
     Route: 065
  2. SEPTRA [Concomitant]
     Active Substance: SULFAMETHOXAZOLE\TRIMETHOPRIM
  3. COVID-19 VACCINE [Concomitant]

REACTIONS (9)
  - Drug ineffective [Fatal]
  - Eastern Cooperative Oncology Group performance status worsened [Fatal]
  - Fall [Fatal]
  - Malignant neoplasm progression [Fatal]
  - Neutropenia [Fatal]
  - Palliative care [Fatal]
  - Primary progressive aphasia [Fatal]
  - Thrombocytopenia [Fatal]
  - Visual impairment [Fatal]
